FAERS Safety Report 14201916 (Version 5)
Quarter: 2024Q1

REPORT INFORMATION
  Report Type: Spontaneous
  Country: BE (occurrence: BE)
  Receive Date: 20171117
  Receipt Date: 20240311
  Transmission Date: 20240410
  Serious: Yes (Death, Hospitalization, Other)
  Sender: FDA-Public Use
  Company Number: None

PATIENT
  Age: 27 Year
  Sex: Female

DRUGS (12)
  1. ANTI-THYMOCYTE GLOBULIN (RABBIT) NOS [Suspect]
     Active Substance: LAPINE T-LYMPHOCYTE IMMUNE GLOBULIN
     Indication: Bone marrow conditioning regimen
     Dosage: UNK UNK,UNK
     Route: 065
  2. FLUDARABINE PHOSPHATE [Suspect]
     Active Substance: FLUDARABINE PHOSPHATE
     Indication: Bone marrow conditioning regimen
     Dosage: UNK UNK,UNK
     Route: 065
  3. CYCLOPHOSPHAMIDE [Suspect]
     Active Substance: CYCLOPHOSPHAMIDE
     Indication: Bone marrow conditioning regimen
     Dosage: UNK UNK,UNK
     Route: 041
  4. MYCOPHENOLATE MOFETIL [Suspect]
     Active Substance: MYCOPHENOLATE MOFETIL
     Indication: Prophylaxis against graft versus host disease
     Dosage: UNK UNK,UNK
     Route: 065
  5. VALGANCICLOVIR HYDROCHLORIDE [Suspect]
     Active Substance: VALGANCICLOVIR HYDROCHLORIDE
     Indication: Cytomegalovirus infection reactivation
     Dosage: UNK UNK,UNK
     Route: 065
  6. BUSULFAN [Suspect]
     Active Substance: BUSULFAN
     Indication: Bone marrow conditioning regimen
     Dosage: UNK UNK,UNK
     Route: 065
  7. TACROLIMUS [Suspect]
     Active Substance: TACROLIMUS
     Indication: Prophylaxis against graft versus host disease
     Dosage: UNK UNK,UNK
     Route: 065
  8. POSACONAZOLE [Suspect]
     Active Substance: POSACONAZOLE
     Dosage: UNK UNK,UNK
     Route: 065
  9. PEGFILGRASTIM [Concomitant]
     Active Substance: PEGFILGRASTIM
     Indication: Acute myeloid leukaemia
     Dosage: UNK UNK,UNK
     Route: 065
  10. CYTARABINE [Concomitant]
     Active Substance: CYTARABINE
     Indication: Acute myeloid leukaemia
     Dosage: UNK UNK,UNK
     Route: 065
  11. FOSCAVIR [Concomitant]
     Active Substance: FOSCARNET SODIUM
     Dosage: UNK UNK,UNK
     Route: 065
  12. IDARUBICIN [Concomitant]
     Active Substance: IDARUBICIN
     Indication: Salvage therapy
     Dosage: UNK UNK,UNK
     Route: 065

REACTIONS (24)
  - Hepatic failure [Fatal]
  - Venous haemorrhage [Fatal]
  - Disseminated intravascular coagulation [Fatal]
  - Hepatic necrosis [Fatal]
  - Adenoviral hepatitis [Fatal]
  - Rash [Fatal]
  - Diarrhoea [Fatal]
  - Hepatomegaly [Fatal]
  - Hepatic pain [Fatal]
  - Oedema [Fatal]
  - Pyrexia [Fatal]
  - Hepatic cytolysis [Fatal]
  - Cholestasis [Fatal]
  - Venoocclusive liver disease [Unknown]
  - Ascites [Unknown]
  - Cytomegalovirus infection reactivation [Unknown]
  - Pancytopenia [Not Recovered/Not Resolved]
  - Neutropenia [Unknown]
  - Staphylococcal sepsis [Unknown]
  - Oral candidiasis [Unknown]
  - Liver function test abnormal [Unknown]
  - Pain [Unknown]
  - Myelosuppression [Unknown]
  - Toxicity to various agents [Unknown]
